FAERS Safety Report 22595050 (Version 1)
Quarter: 2023Q2

REPORT INFORMATION
  Report Type: Spontaneous
  Country: US (occurrence: None)
  Receive Date: 20230612
  Receipt Date: 20230612
  Transmission Date: 20230721
  Serious: Yes (Other)
  Sender: FDA-Public Use
  Company Number: None

PATIENT
  Sex: 0

DRUGS (1)
  1. DICLOFENAC SODIUM [Suspect]
     Active Substance: DICLOFENAC SODIUM
     Indication: Pain in extremity
     Dates: start: 20230607, end: 20230608

REACTIONS (7)
  - Rash [None]
  - Vomiting [None]
  - Diarrhoea [None]
  - Headache [None]
  - Abdominal pain upper [None]
  - Vaginal haemorrhage [None]
  - Delirium [None]

NARRATIVE: CASE EVENT DATE: 20230608
